FAERS Safety Report 15263928 (Version 1)
Quarter: 2018Q3

REPORT INFORMATION
  Report Type: Spontaneous
  Country: US (occurrence: US)
  Receive Date: 20180810
  Receipt Date: 20180810
  Transmission Date: 20181010
  Serious: No
  Sender: FDA-Public Use
  Company Number: US-SA-2018SA218797

PATIENT
  Sex: Female

DRUGS (1)
  1. AUBAGIO [Suspect]
     Active Substance: TERIFLUNOMIDE
     Dosage: 1 DF, BID
     Route: 048
     Dates: start: 201806

REACTIONS (4)
  - Pyrexia [Unknown]
  - Hyperhidrosis [Unknown]
  - Influenza like illness [Unknown]
  - Product use issue [Unknown]

NARRATIVE: CASE EVENT DATE: 201807
